FAERS Safety Report 21920650 (Version 1)
Quarter: 2023Q1

REPORT INFORMATION
  Report Type: Spontaneous
  Country: US (occurrence: None)
  Receive Date: 20230127
  Receipt Date: 20230127
  Transmission Date: 20230418
  Serious: Yes (Disabling, Other)
  Sender: FDA-Public Use
  Company Number: None

PATIENT
  Age: 61 Year
  Sex: Female
  Weight: 96.75 kg

DRUGS (9)
  1. ATORVASTATIN [Suspect]
     Active Substance: ATORVASTATIN
     Indication: Blood cholesterol increased
     Dosage: OTHER QUANTITY : 2 TABLET(S);?FREQUENCY : DAILY;?
     Route: 048
     Dates: start: 20200920, end: 20221227
  2. GABAPENTIN [Concomitant]
     Active Substance: GABAPENTIN
  3. fentanyl  Percocet  PCN doxycycline [Concomitant]
  4. BABY ASPIRIN [Concomitant]
  5. vitamin d [Concomitant]
  6. STOOL SOFTENER (DOCUSATE) [Concomitant]
     Active Substance: DOCUSATE
  7. NAC [Concomitant]
  8. VITAMINS [Concomitant]
     Active Substance: VITAMINS
  9. LYSINE [Concomitant]
     Active Substance: LYSINE

REACTIONS (10)
  - Rash [None]
  - Drug ineffective [None]
  - Movement disorder [None]
  - Feeling abnormal [None]
  - Dementia [None]
  - Vision blurred [None]
  - Muscular weakness [None]
  - Tremor [None]
  - Tinnitus [None]
  - Mental status changes [None]

NARRATIVE: CASE EVENT DATE: 20221227
